FAERS Safety Report 14333039 (Version 3)
Quarter: 2018Q1

REPORT INFORMATION
  Report Type: Spontaneous
  Country: GB (occurrence: GB)
  Receive Date: 20171228
  Receipt Date: 20180221
  Transmission Date: 20180509
  Serious: Yes (Death, Hospitalization)
  Sender: FDA-Public Use
  Company Number: PHHY2017GB192657

PATIENT
  Age: 74 Year
  Sex: Male
  Weight: 61 kg

DRUGS (2)
  1. OMEPRAZOLE. [Concomitant]
     Active Substance: OMEPRAZOLE
     Indication: PRODUCT USED FOR UNKNOWN INDICATION
     Dosage: 10 MG, UNK
     Route: 048
     Dates: start: 20141021, end: 20171005
  2. METHOTREXATE. [Suspect]
     Active Substance: METHOTREXATE
     Indication: RHEUMATOID ARTHRITIS
     Dosage: 20 MG, UNK
     Route: 048
     Dates: start: 20170113, end: 20171207

REACTIONS (10)
  - Pneumonitis [Fatal]
  - Infection [Unknown]
  - Dry throat [Unknown]
  - Lung disorder [Unknown]
  - Oropharyngeal pain [Unknown]
  - Loss of consciousness [Unknown]
  - Cough [Unknown]
  - Pneumothorax [Unknown]
  - Dyspnoea [Unknown]
  - Malaise [Unknown]

NARRATIVE: CASE EVENT DATE: 201711
